APPROVED DRUG PRODUCT: AMANTADINE HYDROCHLORIDE
Active Ingredient: AMANTADINE HYDROCHLORIDE
Strength: 100MG
Dosage Form/Route: CAPSULE;ORAL
Application: A071382 | Product #001
Applicant: WATSON LABORATORIES INC
Approved: Jan 21, 1987 | RLD: No | RS: No | Type: DISCN